FAERS Safety Report 18285178 (Version 1)
Quarter: 2020Q3

REPORT INFORMATION
  Report Type: Spontaneous
  Country: US (occurrence: US)
  Receive Date: 20200919
  Receipt Date: 20200919
  Transmission Date: 20201103
  Serious: No
  Sender: FDA-Public Use
  Company Number: US-009507513-2009USA002279

PATIENT
  Age: 63 Year
  Sex: Male

DRUGS (2)
  1. PROSCAR [Suspect]
     Active Substance: FINASTERIDE
     Indication: BENIGN PROSTATIC HYPERPLASIA
     Dosage: 5 MILLIGRAM, QD
     Route: 048
     Dates: start: 20200821, end: 20200831
  2. FLOMAX [Concomitant]
     Active Substance: TAMSULOSIN HYDROCHLORIDE
     Dosage: UNK

REACTIONS (5)
  - Semenuria [Not Recovered/Not Resolved]
  - Product dose omission issue [Unknown]
  - Bladder pain [Not Recovered/Not Resolved]
  - Insomnia [Not Recovered/Not Resolved]
  - Hypoacusis [Not Recovered/Not Resolved]

NARRATIVE: CASE EVENT DATE: 202008
